FAERS Safety Report 7238282-3 (Version None)
Quarter: 2011Q1

REPORT INFORMATION
  Report Type: 
  Country: None (occurrence: None)
  Receive Date: 20110121
  Receipt Date: 20110112
  Transmission Date: 20110831
  Serious: Yes (Other)
  Sender: FDA-Public Use
  Company Number: US-JNJFOC-20081205990

PATIENT
  Sex: Female
  Weight: 111.59 kg

DRUGS (5)
  1. BELLADONNA [Concomitant]
     Indication: MUSCLE SPASMS
     Route: 048
  2. XANAX [Concomitant]
     Indication: SLEEP DISORDER THERAPY
     Dosage: OCCASIONALLY
  3. REMICADE [Suspect]
     Indication: CROHN'S DISEASE
     Route: 042
  4. REMICADE [Suspect]
     Route: 042
  5. MIRALAX [Concomitant]
     Indication: CONSTIPATION

REACTIONS (6)
  - POSTPARTUM DEPRESSION [None]
  - ABNORMAL LOSS OF WEIGHT [None]
  - NAUSEA [None]
  - DRUG EXPOSURE DURING PREGNANCY [None]
  - MALAISE [None]
  - CROHN'S DISEASE [None]
